FAERS Safety Report 11955785 (Version 2)
Quarter: 2016Q1

REPORT INFORMATION
  Report Type: Report from Study
  Country: US (occurrence: US)
  Receive Date: 20160125
  Receipt Date: 20160201
  Transmission Date: 20160526
  Serious: Yes (Other)
  Sender: FDA-Public Use
  Company Number: US-ABBVIE-15K-163-1344025-00

PATIENT
  Sex: Male

DRUGS (16)
  1. OMEPRAZOLE. [Concomitant]
     Active Substance: OMEPRAZOLE
     Indication: PRODUCT USED FOR UNKNOWN INDICATION
     Dosage: BEFORE A MEAL
     Route: 048
  2. HUMIRA [Suspect]
     Active Substance: ADALIMUMAB
     Indication: POLYARTHRITIS
     Route: 058
     Dates: start: 20140402
  3. ALLOPURINOL. [Concomitant]
     Active Substance: ALLOPURINOL
     Indication: PRODUCT USED FOR UNKNOWN INDICATION
     Route: 048
  4. HYDROCHLOROTHIAZIDE. [Concomitant]
     Active Substance: HYDROCHLOROTHIAZIDE
     Indication: PRODUCT USED FOR UNKNOWN INDICATION
     Route: 048
  5. SIMETHICONE (DIMETHICONE) [Concomitant]
     Active Substance: DIMETHICONE
     Indication: PRODUCT USED FOR UNKNOWN INDICATION
     Dosage: GEL TAB EVERY SIX HOURS
  6. ARAVA [Concomitant]
     Active Substance: LEFLUNOMIDE
     Indication: PRODUCT USED FOR UNKNOWN INDICATION
     Route: 048
  7. SYSTANE (HYPROMELLOSE 2910 (4000 MPA.S)) [Concomitant]
     Active Substance: HYPROMELLOSE 2910 (4000 MPA.S)
     Indication: PRODUCT USED FOR UNKNOWN INDICATION
     Dosage: .3% TO .4%
  8. TYLENOL EXTRA STRENGTH [Concomitant]
     Active Substance: ACETAMINOPHEN
     Indication: PRODUCT USED FOR UNKNOWN INDICATION
  9. COZAAR [Concomitant]
     Active Substance: LOSARTAN POTASSIUM
     Indication: PRODUCT USED FOR UNKNOWN INDICATION
     Dosage: EVERY DAY
     Route: 048
  10. CITRACAL-D [Concomitant]
     Indication: PRODUCT USED FOR UNKNOWN INDICATION
     Dosage: CALCIUM 200 UNIT
  11. CLINDAMYCIN PHOSPHATE AND BENZOYL PEROXIDE [Concomitant]
     Active Substance: BENZOYL PEROXIDE\CLINDAMYCIN PHOSPHATE
     Indication: PRODUCT USED FOR UNKNOWN INDICATION
     Dosage: 1% - 5%
  12. DOXYCYCLIN [Concomitant]
     Active Substance: DOXYCYCLINE
     Indication: PRODUCT USED FOR UNKNOWN INDICATION
  13. HYDROCODONE/ACETAMINOPHEN [Concomitant]
     Active Substance: ACETAMINOPHEN\HYDROCODONE
     Indication: PRODUCT USED FOR UNKNOWN INDICATION
     Dosage: 6 MG - 500 MG ONE TO TWO TABLETS EVERY FOUR TO SIX HOURS MUST LAST 30 DAYS
     Route: 048
  14. MIRALAX [Concomitant]
     Active Substance: POLYETHYLENE GLYCOL 3350
     Indication: PRODUCT USED FOR UNKNOWN INDICATION
  15. GABAPENTIN. [Concomitant]
     Active Substance: GABAPENTIN
     Indication: PRODUCT USED FOR UNKNOWN INDICATION
     Dosage: IN THE NIGHT
     Route: 048
  16. CELEBREX [Concomitant]
     Active Substance: CELECOXIB
     Indication: PRODUCT USED FOR UNKNOWN INDICATION

REACTIONS (14)
  - Back pain [Not Recovered/Not Resolved]
  - Tendon disorder [Unknown]
  - Furuncle [Unknown]
  - Joint range of motion decreased [Unknown]
  - Constipation [Unknown]
  - Pain [Unknown]
  - Pain in extremity [Unknown]
  - Paraesthesia [Unknown]
  - Rash pustular [Unknown]
  - Musculoskeletal stiffness [Unknown]
  - Hypoaesthesia [Unknown]
  - Fatigue [Unknown]
  - Snoring [Unknown]
  - Somnolence [Unknown]

NARRATIVE: CASE EVENT DATE: 2014
